FAERS Safety Report 7130236-0 (Version None)
Quarter: 2010Q4

REPORT INFORMATION
  Report Type: 
  Country: None (occurrence: None)
  Receive Date: 20101201
  Receipt Date: 20101117
  Transmission Date: 20110411
  Serious: Yes (Other)
  Sender: FDA-Public Use
  Company Number: PHHY2009US66772

PATIENT
  Sex: Female
  Weight: 63.492 kg

DRUGS (1)
  1. EXJADE [Suspect]
     Dosage: 500 MG, TID
     Dates: start: 20090929, end: 20091124

REACTIONS (8)
  - DEAFNESS [None]
  - GASTROINTESTINAL DISORDER [None]
  - HYPERSENSITIVITY [None]
  - LIVER DISORDER [None]
  - OEDEMA PERIPHERAL [None]
  - RASH [None]
  - RENAL DISORDER [None]
  - VISUAL IMPAIRMENT [None]
